FAERS Safety Report 6969641-1 (Version None)
Quarter: 2010Q3

REPORT INFORMATION
  Report Type: 
  Country: None (occurrence: None)
  Receive Date: 20100908
  Receipt Date: 20100903
  Transmission Date: 20110219
  Serious: Yes (Other)
  Sender: FDA-Public Use
  Company Number: US-ASTRAZENECA-2007UW05541

PATIENT
  Sex: Female
  Weight: 131.5 kg

DRUGS (11)
  1. SEROQUEL [Suspect]
     Indication: BIPOLAR DISORDER
     Dosage: 200 MG, 6 DAILY
     Route: 048
     Dates: start: 20010201, end: 20050201
  2. SEROQUEL [Suspect]
     Route: 048
     Dates: start: 19990101, end: 20050201
  3. RISPERDAL [Concomitant]
     Indication: ANXIETY
     Dates: start: 20000201, end: 20000301
  4. RISPERDAL [Concomitant]
     Indication: BIPOLAR DISORDER
     Dates: start: 20000201, end: 20000301
  5. ZYPREXA [Concomitant]
     Indication: ANXIETY
     Dates: start: 20000601, end: 20000801
  6. ZYPREXA [Concomitant]
     Indication: BIPOLAR DISORDER
     Dates: start: 20000601, end: 20000801
  7. KLONOPIN [Concomitant]
     Indication: BIPOLAR DISORDER
     Dates: start: 20030101, end: 20040101
  8. ABILIFY [Concomitant]
     Dosage: 5-10 MG
     Dates: start: 20090101
  9. GEODON [Concomitant]
     Dates: start: 20060101
  10. HALDOL [Concomitant]
     Dates: start: 19700101
  11. TRILAFON [Concomitant]
     Dates: start: 19700101

REACTIONS (14)
  - ANGINA PECTORIS [None]
  - BLOOD CHOLESTEROL INCREASED [None]
  - CARDIAC DISORDER [None]
  - CARDIAC FAILURE CONGESTIVE [None]
  - CELLULITIS [None]
  - CORONARY ARTERY DISEASE [None]
  - DIVERTICULITIS [None]
  - HYPERLIPIDAEMIA [None]
  - HYPERTENSION [None]
  - MYOPATHY [None]
  - PANCREATITIS [None]
  - TARDIVE DYSKINESIA [None]
  - THROMBOCYTOPENIA [None]
  - TYPE 2 DIABETES MELLITUS [None]
